FAERS Safety Report 8991037 (Version 1)
Quarter: 2012Q4

REPORT INFORMATION
  Report Type: Spontaneous
  Country: BR (occurrence: None)
  Receive Date: 20121221
  Receipt Date: 20121221
  Transmission Date: 20130627
  Serious: Yes (Hospitalization)
  Sender: FDA-Public Use
  Company Number: DSA-2012-09891

PATIENT
  Sex: Male

DRUGS (5)
  1. OLMETEC (OLMESARTAN MEDOXOMIL) (40 MILLIGRAM TABLET) (OLMESARTAN MEDOXOMIL) [Suspect]
     Indication: DRUG USE FOR UNKNOWN INDICATION
     Dosage: 40 mg (40 mg, QD)
     Route: 048
  2. EFFEXOR XR (VENLAFAXINE HYDROCHLORIDE) (75 MILLIGRAM, CAPSULE) (VENLAFAXINE HYDROCHLORIDE) [Suspect]
     Indication: DRUG USE FOR UNKNOWN INDICATION
     Dosage: 150 mg (75 mg, BID)
     Route: 048
  3. DIOVAN (VALSARTAN) (VALSARTAN) [Concomitant]
  4. REMINYL (GALANTAMINE) (GALANTAMINE) [Concomitant]
  5. SECOTEX (TAMSULOSIN HYDROCHLORIDE) (TAMSULOSIN HYDROCHLORIDE) [Concomitant]

REACTIONS (1)
  - Cerebrovascular accident [None]
